FAERS Safety Report 16410772 (Version 1)
Quarter: 2019Q2

REPORT INFORMATION
  Report Type: Spontaneous
  Country: US (occurrence: US)
  Receive Date: 20190610
  Receipt Date: 20190610
  Transmission Date: 20190711
  Serious: No
  Sender: FDA-Public Use
  Company Number: US-009507513-1905USA013674

PATIENT
  Age: 66 Year
  Sex: Female

DRUGS (1)
  1. INVANZ [Suspect]
     Active Substance: ERTAPENEM SODIUM
     Indication: PASTEURELLA INFECTION
     Dosage: UNK
     Route: 041

REACTIONS (1)
  - Product use in unapproved indication [Unknown]
